FAERS Safety Report 5505730-6 (Version None)
Quarter: 2007Q4

REPORT INFORMATION
  Report Type: 
  Country: None (occurrence: None)
  Receive Date: 20071102
  Receipt Date: 20071029
  Transmission Date: 20080405
  Serious: Yes (Life-Threatening, Other)
  Sender: FDA-Public Use
  Company Number: LB-SANOFI-SYNTHELABO-F01200701393

PATIENT
  Sex: Male
  Weight: 58 kg

DRUGS (4)
  1. FLUOROURACIL [Suspect]
  2. CORDARONE [Concomitant]
     Indication: HYPERTENSION
     Dosage: 1 TABLET
     Route: 048
  3. CONCOR [Concomitant]
     Indication: HYPERTENSION
     Dosage: 1/2 TABLET
     Route: 048
  4. ELOXATIN [Suspect]
     Indication: COLON CANCER
     Route: 041
     Dates: start: 20071028, end: 20071028

REACTIONS (1)
  - ACUTE CORONARY SYNDROME [None]
